FAERS Safety Report 8832744 (Version 1)
Quarter: 2012Q4

REPORT INFORMATION
  Report Type: 
  Country: IT (occurrence: IT)
  Receive Date: 20121010
  Receipt Date: 20121010
  Transmission Date: 20130627
  Serious: Yes (Death, Other)
  Sender: FDA-Public Use
  Company Number: IT-CELGENEUS-083-21880-12093297

PATIENT

DRUGS (11)
  1. REVLIMID [Suspect]
     Indication: MULTIPLE MYELOMA
     Dosage: 25 Milligram
     Route: 048
  2. REVLIMID [Suspect]
     Route: 048
  3. REVLIMID [Suspect]
     Dosage: 10 Milligram
     Route: 048
  4. MELPHALAN [Suspect]
     Indication: MULTIPLE MYELOMA
     Dosage: 2 Milligram
     Route: 065
  5. PREDNISONE [Suspect]
     Indication: MULTIPLE MYELOMA
     Dosage: 21.4286 Milligram
     Route: 065
  6. PREDNISONE [Suspect]
     Dosage: 10.7143 Milligram
     Route: 065
  7. ANTIVIRAL PROPHYLAXIS [Concomitant]
     Indication: INFECTION
     Route: 065
  8. ANTIBACTERIAL PROPHYLAXIS [Concomitant]
     Indication: INFECTION
     Route: 065
  9. ANTIFUNGAL [Concomitant]
     Indication: INFECTION
     Route: 065
  10. BIPHOSPHONATE [Concomitant]
     Route: 065
  11. HEMATOPOIETIC GROWTH FACTORS [Concomitant]
     Indication: DRUG USE FOR UNKNOWN INDICATION
     Route: 065

REACTIONS (19)
  - Sudden death [Fatal]
  - Acute coronary syndrome [Unknown]
  - Arrhythmia [Unknown]
  - Pulmonary oedema [Unknown]
  - Sepsis [Unknown]
  - Pneumonia [Unknown]
  - Neutropenia [Unknown]
  - Hyperglycaemia [Unknown]
  - Hypothyroidism [Unknown]
  - Thrombocytopenia [Unknown]
  - Anaemia [Unknown]
  - Rash [Unknown]
  - Constipation [Unknown]
  - Diarrhoea [Unknown]
  - Weight decreased [Unknown]
  - Neuropathy peripheral [Unknown]
  - Depression [Unknown]
  - Anxiety [Unknown]
  - Fatigue [Unknown]
